FAERS Safety Report 7590335-6 (Version None)
Quarter: 2011Q3

REPORT INFORMATION
  Report Type: 
  Country: None (occurrence: None)
  Receive Date: 20110705
  Receipt Date: 20110701
  Transmission Date: 20111222
  Serious: Yes (Life-Threatening, Other)
  Sender: FDA-Public Use
  Company Number: GB-TEVA-288887ISR

PATIENT
  Age: 85 Year
  Sex: Female
  Weight: 49 kg

DRUGS (1)
  1. ALENDRONIC ACID [Suspect]
     Indication: OSTEOPOROSIS
     Route: 048
     Dates: start: 20110606

REACTIONS (1)
  - TRACHEO-OESOPHAGEAL FISTULA [None]
